FAERS Safety Report 9344308 (Version 1)
Quarter: 2013Q2

REPORT INFORMATION
  Report Type: Spontaneous
  Country: US (occurrence: None)
  Receive Date: 20130611
  Receipt Date: 20130611
  Transmission Date: 20140414
  Serious: Yes (Hospitalization)
  Sender: FDA-Public Use
  Company Number: None

PATIENT
  Age: 49 Year
  Sex: Female
  Weight: 87.8 kg

DRUGS (1)
  1. GAMUNEX C [Suspect]
     Route: 042
     Dates: start: 20130520, end: 20130524

REACTIONS (2)
  - Haemolytic anaemia [None]
  - Haemodynamic instability [None]
